FAERS Safety Report 15615105 (Version 2)
Quarter: 2019Q1

REPORT INFORMATION
  Report Type: Report from Study
  Country: None (occurrence: US)
  Receive Date: 20181114
  Receipt Date: 20190121
  Transmission Date: 20190417
  Serious: Yes (Other)
  Sender: FDA-Public Use
  Company Number: US-ABBVIE-18K-163-2549751-00

PATIENT
  Sex: Female

DRUGS (1)
  1. HUMIRA [Suspect]
     Active Substance: ADALIMUMAB
     Indication: CROHN^S DISEASE
     Dosage: CF PEN
     Route: 058

REACTIONS (5)
  - Diarrhoea [Unknown]
  - Hernia [Unknown]
  - Small intestinal obstruction [Recovered/Resolved]
  - Post procedural infection [Unknown]
  - Dehydration [Unknown]
